FAERS Safety Report 6910987-0 (Version None)
Quarter: 2010Q3

REPORT INFORMATION
  Report Type: 
  Country: None (occurrence: None)
  Receive Date: 20100806
  Receipt Date: 20100730
  Transmission Date: 20110219
  Serious: Yes (Death, Hospitalization)
  Sender: FDA-Public Use
  Company Number: A0866455A

PATIENT
  Age: 62 Year
  Sex: Male

DRUGS (3)
  1. AVANDIA [Suspect]
     Indication: TYPE 2 DIABETES MELLITUS
     Dates: start: 20030201, end: 20070801
  2. METFORMIN HCL [Concomitant]
  3. GLYBURIDE [Concomitant]

REACTIONS (11)
  - ARTERIOSCLEROSIS [None]
  - CARDIAC FAILURE CONGESTIVE [None]
  - CARDIOMEGALY [None]
  - CEREBROVASCULAR ACCIDENT [None]
  - CORONARY ARTERY DISEASE [None]
  - HEPATIC NECROSIS [None]
  - MYOCARDIAL INFARCTION [None]
  - OEDEMA [None]
  - PULMONARY EMBOLISM [None]
  - PULMONARY OEDEMA [None]
  - RENAL DISORDER [None]
